FAERS Safety Report 17150280 (Version 1)
Quarter: 2019Q4

REPORT INFORMATION
  Report Type: Spontaneous
  Country: US (occurrence: US)
  Receive Date: 20191213
  Receipt Date: 20191213
  Transmission Date: 20200122
  Serious: No
  Sender: FDA-Public Use
  Company Number: US-GLAXOSMITHKLINE-US2019AMR222450

PATIENT
  Age: 45 Year
  Sex: Male

DRUGS (2)
  1. NUCALA [Suspect]
     Active Substance: MEPOLIZUMAB
     Indication: ASTHMA
     Dosage: UNK (EVERY 4 WEEKS)
     Route: 058
     Dates: start: 2016
  2. PREDNISONE. [Concomitant]
     Active Substance: PREDNISONE
     Indication: PRODUCT USED FOR UNKNOWN INDICATION
     Dosage: UNK (ONCE A YEAR IF NEEDED)
     Route: 065

REACTIONS (8)
  - Paraesthesia [Unknown]
  - Neck surgery [Recovered/Resolved]
  - Product dose omission [Unknown]
  - Exostosis [Unknown]
  - Fibromyalgia [Unknown]
  - Nerve compression [Unknown]
  - Spinal operation [Recovered/Resolved]
  - Intervertebral disc operation [Unknown]

NARRATIVE: CASE EVENT DATE: 201906
